FAERS Safety Report 4820479-0 (Version None)
Quarter: 2005Q4

REPORT INFORMATION
  Report Type: 
  Country: None (occurrence: None)
  Receive Date: 20051104
  Receipt Date: 20051027
  Transmission Date: 20060501
  Serious: Yes (Hospitalization)
  Sender: FDA-Public Use
  Company Number: DE-ABBOTT-05P-062-0315437-00

PATIENT
  Sex: Male
  Weight: 65 kg

DRUGS (1)
  1. ZEMPLAR [Suspect]
     Indication: SECONDARY HYPERTHYROIDISM
     Dosage: 1.7 MILLILITERS THREE TIMES A WEEK DURING DIALYSIS
     Route: 042
     Dates: start: 20051005

REACTIONS (2)
  - FALL [None]
  - FEMUR FRACTURE [None]
